FAERS Safety Report 4663662-X (Version None)
Quarter: 2005Q2

REPORT INFORMATION
  Report Type: 
  Country: None (occurrence: None)
  Receive Date: 20050511
  Receipt Date: 20050323
  Transmission Date: 20051028
  Serious: Yes (Other)
  Sender: FDA-Public Use
  Company Number: 399660

PATIENT
  Sex: Female

DRUGS (1)
  1. PEGASYS [Suspect]

REACTIONS (3)
  - HEADACHE [None]
  - INSOMNIA [None]
  - PLATELET COUNT DECREASED [None]
